FAERS Safety Report 22197603 (Version 3)
Quarter: 2023Q2

REPORT INFORMATION
  Report Type: Spontaneous
  Country: US (occurrence: US)
  Receive Date: 20230411
  Receipt Date: 20230502
  Transmission Date: 20230721
  Serious: No
  Sender: FDA-Public Use
  Company Number: US-PFIZER INC-2020195590

PATIENT
  Age: 85 Year
  Sex: Female
  Weight: 53.07 kg

DRUGS (1)
  1. MENEST [Suspect]
     Active Substance: ESTROGENS, ESTERIFIED
     Indication: Oestrogen replacement therapy
     Dosage: 0.625 MG, 1X/DAY(0.625MG ONCE A DAY)

REACTIONS (1)
  - Body height decreased [Unknown]
